FAERS Safety Report 7042210-3 (Version None)
Quarter: 2010Q3

REPORT INFORMATION
  Report Type: 
  Country: None (occurrence: None)
  Receive Date: 20100929
  Receipt Date: 20100806
  Transmission Date: 20110219
  Serious: No
  Sender: FDA-Public Use
  Company Number: US-WYE-H16799510

PATIENT
  Age: 80 Year
  Sex: Female
  Weight: 63.56 kg

DRUGS (16)
  1. PRISTIQ [Suspect]
     Indication: DEPRESSION
     Dosage: (50 MG 1X PER 1 DAY, ORAL), (STARTED TO WEAN BY TAKING 1/2 50 MG TABLET, ORAL)
     Route: 048
     Dates: start: 20100101, end: 20100804
  2. PRISTIQ [Suspect]
     Indication: DEPRESSION
     Dosage: (50 MG 1X PER 1 DAY, ORAL), (STARTED TO WEAN BY TAKING 1/2 50 MG TABLET, ORAL)
     Route: 048
     Dates: start: 20100805
  3. LIPITOR [Suspect]
     Indication: PROPHYLAXIS
     Dosage: 5 MG 1X PER 1 DAY, ORAL
     Route: 048
  4. COUMADIN [Concomitant]
  5. NAMENDA [Concomitant]
  6. LANOXIN [Concomitant]
  7. BENICAR HCT [Concomitant]
  8. EVISTA [Concomitant]
  9. LEVOTHYROXINE [Concomitant]
  10. FUROSEMIDE [Concomitant]
  11. POTASSIUM CHLORIDE [Concomitant]
  12. ADVAIR DISKUS 100/50 [Concomitant]
  13. CALCIUM [Concomitant]
  14. FISH OIL, HYDROGENATED [Concomitant]
  15. VITAMIN D [Concomitant]
  16. PROVENTIL [Concomitant]

REACTIONS (5)
  - DRUG WITHDRAWAL SYNDROME [None]
  - HEADACHE [None]
  - INSOMNIA [None]
  - UNEVALUABLE EVENT [None]
  - WRONG TECHNIQUE IN DRUG USAGE PROCESS [None]
